FAERS Safety Report 7872170-4 (Version None)
Quarter: 2011Q4

REPORT INFORMATION
  Report Type: 
  Country: None (occurrence: None)
  Receive Date: 20111029
  Receipt Date: 20110315
  Transmission Date: 20120403
  Serious: No
  Sender: FDA-Public Use
  Company Number: US-AMGEN-USASP2011014306

PATIENT
  Age: 55 Year
  Sex: Female

DRUGS (2)
  1. METHOTREXATE [Concomitant]
     Dosage: 1 MG, QWK
     Dates: start: 20110306
  2. ENBREL [Suspect]
     Indication: RHEUMATOID ARTHRITIS
     Dosage: 50 MG, QWK
     Dates: start: 20110306

REACTIONS (8)
  - ASTHENIA [None]
  - VIRAL INFECTION [None]
  - INJECTION SITE PAIN [None]
  - VOMITING [None]
  - DECREASED APPETITE [None]
  - DRUG EFFECT DECREASED [None]
  - DIARRHOEA [None]
  - INJECTION SITE SWELLING [None]
